FAERS Safety Report 25653037 (Version 1)
Quarter: 2025Q3

REPORT INFORMATION
  Report Type: Spontaneous
  Country: US (occurrence: US)
  Receive Date: 20250807
  Receipt Date: 20250807
  Transmission Date: 20251021
  Serious: No
  Sender: BIOGEN
  Company Number: US-BIOGEN-2024BI01264444

PATIENT
  Sex: Female

DRUGS (3)
  1. VUMERITY [Suspect]
     Active Substance: DIROXIMEL FUMARATE
     Indication: Multiple sclerosis
     Dosage: TAKE 2 CAPSULES BY MOUTH TWICE DAILY
     Route: 050
     Dates: start: 20231116
  2. DEXTROMETHOR [Concomitant]
     Route: 050
  3. PYRILAMINE MALEATE [Concomitant]
     Active Substance: PYRILAMINE MALEATE
     Route: 050

REACTIONS (8)
  - Product dose omission in error [Unknown]
  - Muscular weakness [Unknown]
  - Arthropathy [Unknown]
  - Constipation [Unknown]
  - Multiple sclerosis [Unknown]
  - Mobility decreased [Recovered/Resolved]
  - Fall [Recovered/Resolved]
  - Abdominal pain [Unknown]
